FAERS Safety Report 13089238 (Version 2)
Quarter: 2017Q1

REPORT INFORMATION
  Report Type: Spontaneous
  Country: US (occurrence: US)
  Receive Date: 20170105
  Receipt Date: 20170131
  Transmission Date: 20170428
  Serious: Yes (Other)
  Sender: FDA-Public Use
  Company Number: US-PFIZER INC-2017003112

PATIENT
  Age: 73 Year
  Sex: Male

DRUGS (2)
  1. CISPLATIN. [Suspect]
     Active Substance: CISPLATIN
     Indication: BLADDER TRANSITIONAL CELL CARCINOMA
     Dosage: UNK, CYCLIC (THREE WEEKLY DOSES EVERY 28 DAYS)
  2. GEMCITABINE HYDROCHLORIDE. [Suspect]
     Active Substance: GEMCITABINE HYDROCHLORIDE
     Indication: BLADDER TRANSITIONAL CELL CARCINOMA
     Dosage: UNK, CYCLIC (THREE WEEKLY DOSES EVERY 28 DAYS)

REACTIONS (3)
  - Urinary retention [Unknown]
  - Urinary tract infection [Unknown]
  - Thrombocytopenia [Unknown]
